FAERS Safety Report 6442286-8 (Version None)
Quarter: 2009Q4

REPORT INFORMATION
  Report Type: 
  Country: None (occurrence: None)
  Receive Date: 20091116
  Receipt Date: 20091106
  Transmission Date: 20100525
  Serious: Yes (Other)
  Sender: FDA-Public Use
  Company Number: JP-WATSON-2009-07539

PATIENT
  Sex: Male

DRUGS (12)
  1. RAPAFLO [Suspect]
     Indication: BLADDER OBSTRUCTION
     Dosage: 4 MG, BID
     Route: 048
     Dates: start: 20090126
  2. RENIVACE [Concomitant]
     Indication: HYPERTENSION
     Dosage: 5 MG, DAILY
     Route: 048
     Dates: start: 19990520
  3. TAKEPRON [Concomitant]
     Indication: REFLUX OESOPHAGITIS
     Dosage: 15 MG, DAILY
     Route: 048
     Dates: start: 20020520
  4. TENORMIN [Concomitant]
     Indication: HYPERTENSION
     Dosage: 50 MG, DAILY
     Route: 048
     Dates: start: 19990520
  5. NOSLAN [Concomitant]
     Indication: NASAL CONGESTION
     Dosage: 1 DOSAGE FORMS
     Route: 045
     Dates: start: 20091009
  6. TOWK [Concomitant]
     Indication: NASAL CONGESTION
     Dosage: 1 DOSAGE FORMS
     Route: 045
     Dates: start: 20091009
  7. CLARITIN  REDITABS                         /00917501/ [Concomitant]
     Indication: NASAL CONGESTION
     Dosage: 10 MG, UNKNOWN
     Route: 048
     Dates: start: 20091009, end: 20091015
  8. ZITHROMAX [Concomitant]
     Indication: DRUG USE FOR UNKNOWN INDICATION
     Dosage: 500 MG, UNKNOWN
     Route: 048
     Dates: start: 20091027, end: 20091029
  9. ANTOBRON [Concomitant]
     Indication: DRUG USE FOR UNKNOWN INDICATION
     Dosage: UNK
     Route: 048
     Dates: start: 20091027, end: 20091029
  10. MEDICON                            /00048102/ [Concomitant]
     Indication: DRUG USE FOR UNKNOWN INDICATION
     Dosage: UNK
     Route: 048
     Dates: start: 20091027, end: 20091029
  11. DASEN [Concomitant]
     Indication: DRUG USE FOR UNKNOWN INDICATION
     Dosage: 6 DOSAGE FORMS, UNKNOWN
     Route: 048
     Dates: start: 20091027, end: 20091029
  12. THEO-DUR [Concomitant]
     Indication: DRUG USE FOR UNKNOWN INDICATION
     Dosage: 400 MG, UNKNOWN
     Route: 048
     Dates: start: 20091027, end: 20091029

REACTIONS (1)
  - LEUKOCYTOSIS [None]
